FAERS Safety Report 13260346 (Version 7)
Quarter: 2017Q3

REPORT INFORMATION
  Report Type: Spontaneous
  Country: US (occurrence: US)
  Receive Date: 20170222
  Receipt Date: 20170801
  Transmission Date: 20171127
  Serious: Yes (Hospitalization, Other)
  Sender: FDA-Public Use
  Company Number: US-HORIZON-RAV-0056-2017

PATIENT
  Age: 58 Year
  Sex: Female

DRUGS (4)
  1. RAVICTI [Suspect]
     Active Substance: GLYCEROL PHENYLBUTYRATE
     Indication: UREA CYCLE DISORDER
     Dosage: 3 ML TID
     Route: 048
     Dates: start: 20160804, end: 201701
  2. XIFAXAN [Concomitant]
     Active Substance: RIFAXIMIN
  3. LISINOPRIL. [Concomitant]
     Active Substance: LISINOPRIL
  4. CYMBALTA [Concomitant]
     Active Substance: DULOXETINE HYDROCHLORIDE

REACTIONS (13)
  - Fluid retention [Recovered/Resolved]
  - Pulmonary hypertension [Recovering/Resolving]
  - Weight increased [Recovered/Resolved]
  - Right ventricular failure [Unknown]
  - Urinary tract infection [Recovered/Resolved]
  - Renal impairment [Recovered/Resolved]
  - Dyspnoea [Recovered/Resolved]
  - Blood sodium decreased [Recovering/Resolving]
  - Feeling abnormal [Unknown]
  - Abdominal cavity drainage [Unknown]
  - Nausea [Recovered/Resolved]
  - Pericarditis [Recovering/Resolving]
  - Speech disorder [Unknown]

NARRATIVE: CASE EVENT DATE: 20170201
